FAERS Safety Report 9717035 (Version 1)
Quarter: 2013Q4

REPORT INFORMATION
  Report Type: Spontaneous
  Country: US (occurrence: US)
  Receive Date: 20131127
  Receipt Date: 20131127
  Transmission Date: 20140711
  Serious: No
  Sender: FDA-Public Use
  Company Number: US-GILEAD-2009-0020716

PATIENT
  Sex: Female
  Weight: 62.6 kg

DRUGS (10)
  1. LETAIRIS [Suspect]
     Indication: PULMONARY ARTERIAL HYPERTENSION
     Route: 048
     Dates: start: 20080318
  2. COUMADIN [Suspect]
  3. OXYGEN [Concomitant]
  4. TORSEMIDE [Concomitant]
  5. METOPROLOL [Concomitant]
  6. DILTIAZEM [Concomitant]
  7. POTASSIUM CHLORIDE [Concomitant]
  8. LUMIGAN .03% [Concomitant]
  9. TRUSOPT 2% [Concomitant]
  10. ALPHAGAN .1% [Concomitant]

REACTIONS (5)
  - Faeces discoloured [Unknown]
  - Oxygen saturation decreased [Unknown]
  - Visual acuity reduced [Unknown]
  - Contusion [Unknown]
  - Hypoacusis [Unknown]
